FAERS Safety Report 15371801 (Version 1)
Quarter: 2018Q4

REPORT INFORMATION
  Report Type: Spontaneous
  Country: GB (occurrence: GB)
  Receive Date: 20180911
  Receipt Date: 20180911
  Transmission Date: 20190204
  Serious: Yes (Other)
  Sender: FDA-Public Use
  Company Number: GB-MYLANLABS-2018M1066466

PATIENT
  Age: 34 Year
  Sex: Female
  Weight: 54.88 kg

DRUGS (1)
  1. ZIDOVAL GEL [Suspect]
     Active Substance: METRONIDAZOLE
     Indication: ADNEXA UTERI PAIN
     Dosage: 5 MG, UNK
     Dates: start: 20180129, end: 20180130

REACTIONS (3)
  - Vaginal haemorrhage [Not Recovered/Not Resolved]
  - Renal pain [Not Recovered/Not Resolved]
  - Chest discomfort [Not Recovered/Not Resolved]

NARRATIVE: CASE EVENT DATE: 20180129
